FAERS Safety Report 6655612-1 (Version None)
Quarter: 2010Q1

REPORT INFORMATION
  Report Type: 
  Country: None (occurrence: None)
  Receive Date: 20100329
  Receipt Date: 20100322
  Transmission Date: 20100710
  Serious: Yes (Life-Threatening)
  Sender: FDA-Public Use
  Company Number: CZ-ASTRAZENECA-2010SE12718

PATIENT
  Age: 26227 Day
  Sex: Female

DRUGS (7)
  1. CRESTOR [Suspect]
     Indication: DYSLIPIDAEMIA
     Route: 048
     Dates: start: 20090601, end: 20100125
  2. PRESTARIUM NEO FORTE [Concomitant]
     Dosage: AT NIGHT
     Route: 048
  3. ANOPYRIN [Concomitant]
     Route: 048
  4. HIPRES [Concomitant]
     Dosage: 10, ONE DAILY
     Route: 048
  5. HYDROCHLOTHIAZID [Concomitant]
     Dosage: 1/2 DAILY
     Route: 048
  6. MONOTAB SR [Concomitant]
     Dosage: 1/2 DAILY
     Route: 048
  7. BETALOC SR [Concomitant]
     Route: 048

REACTIONS (2)
  - RENAL FAILURE ACUTE [None]
  - RHABDOMYOLYSIS [None]
